FAERS Safety Report 13568176 (Version 1)
Quarter: 2017Q2

REPORT INFORMATION
  Report Type: Spontaneous
  Country: US (occurrence: US)
  Receive Date: 20170522
  Receipt Date: 20170522
  Transmission Date: 20170830
  Serious: No
  Sender: FDA-Public Use
  Company Number: US-JNJFOC-20170502295

PATIENT
  Sex: Female

DRUGS (1)
  1. DARZALEX [Suspect]
     Active Substance: DARATUMUMAB
     Indication: PRODUCT USED FOR UNKNOWN INDICATION
     Route: 042

REACTIONS (7)
  - Pyrexia [Unknown]
  - Red blood cell count decreased [Unknown]
  - Fatigue [Unknown]
  - Urticaria [Unknown]
  - Dry mouth [Unknown]
  - Muscle spasms [Unknown]
  - Nausea [Unknown]
